FAERS Safety Report 25837616 (Version 2)
Quarter: 2025Q3

REPORT INFORMATION
  Report Type: Spontaneous
  Country: EU (occurrence: EU)
  Receive Date: 20250923
  Receipt Date: 20250930
  Transmission Date: 20251020
  Serious: Yes (Life-Threatening, Hospitalization, Other)
  Sender: MYLAN
  Company Number: EU-ORESUND-25OPAJY0978P

PATIENT
  Age: 79 Year
  Sex: Male

DRUGS (3)
  1. METHOTREXATE [Suspect]
     Active Substance: METHOTREXATE
     Indication: Arthralgia
     Dosage: 10 MILLIGRAM, QW (PRESCRIBED MTX 10 MG WEEKLY)
  2. METHOTREXATE [Suspect]
     Active Substance: METHOTREXATE
     Dosage: 10 MILLIGRAM, QD, MISTAKENLY TAKING 10 MG MTX DAILY INSTEAD OF WEEKLY FOR THE PREVIOUS 6 DAYS
  3. PREDNISONE [Suspect]
     Active Substance: PREDNISONE
     Indication: Product used for unknown indication
     Dosage: 40 MILLIGRAM, QD, FOLLOWED BY GRADUAL TAPERING

REACTIONS (17)
  - Product communication issue [Unknown]
  - Incorrect dose administered [Unknown]
  - Toxicity to various agents [Unknown]
  - Thrombocytopenia [Recovered/Resolved]
  - Pancytopenia [Recovered/Resolved]
  - Leukopenia [Recovered/Resolved]
  - Skin lesion [Recovered/Resolved]
  - Normocytic anaemia [Recovered/Resolved]
  - Ulcer [Recovered/Resolved]
  - Rash [Recovered/Resolved]
  - Mucosal inflammation [Recovered/Resolved]
  - Aspartate aminotransferase abnormal [Recovered/Resolved]
  - Alanine aminotransferase abnormal [Recovered/Resolved]
  - Erythema [Recovered/Resolved]
  - Accidental overdose [Recovered/Resolved]
  - Therapy cessation [Unknown]
  - Therapy change [Unknown]
